FAERS Safety Report 8702345 (Version 2)
Quarter: 2013Q2

REPORT INFORMATION
  Report Type: Spontaneous
  Country: US (occurrence: US)
  Receive Date: 20120803
  Receipt Date: 20130417
  Transmission Date: 20140414
  Serious: Yes (Hospitalization)
  Sender: FDA-Public Use
  Company Number: US-BAYER-2012-076189

PATIENT
  Age: 50 Year
  Sex: Female

DRUGS (17)
  1. YASMIN [Suspect]
     Dosage: UNK
     Dates: start: 20091023, end: 20100416
  2. YAZ [Suspect]
     Indication: MENSTRUATION IRREGULAR
     Dosage: UNK
     Dates: start: 20091023
  3. YAZ [Suspect]
     Indication: HORMONE LEVEL ABNORMAL
  4. DOCOSAHEXANOIC ACID/EICOSAPENTAENOIC ACID [Concomitant]
     Dosage: 1200 MG, DAILY
     Route: 048
     Dates: start: 20100413
  5. MULTIVITAMINS [Concomitant]
     Dosage: 1 DF, DAILY
     Route: 048
     Dates: start: 20100413
  6. OMEPRAZOLE [Concomitant]
     Indication: GASTROOESOPHAGEAL REFLUX DISEASE
     Dosage: 20 MG, DAILY
     Route: 048
     Dates: start: 20100413
  7. MELOXICAM [Concomitant]
     Indication: FIBROMYALGIA
     Dosage: 15 MG, DAILY
     Route: 048
     Dates: start: 20100413
  8. MELOXICAM [Concomitant]
     Indication: FIBROMYALGIA
     Dosage: 7.5 MG, ONCE
     Route: 048
     Dates: start: 20100413
  9. ZOLPIDEM [Concomitant]
     Dosage: 10 MG, HS DAILY
     Route: 048
     Dates: start: 20100413
  10. ATENOLOL [Concomitant]
     Indication: HYPERTENSION
     Dosage: 50 MG, DAILY
     Route: 048
     Dates: start: 20100413
  11. CALCIUM D3 [CALCIUM CARBONATE,COLECALCIFEROL] [Concomitant]
     Dosage: 1250/200 UNIT TABLET, DAILY
     Route: 048
     Dates: start: 20100413
  12. GABAPENTIN [Concomitant]
     Indication: FIBROMYALGIA
     Dosage: 100 MG, TID
     Route: 048
     Dates: start: 20100413
  13. ENALAPRIL [Concomitant]
     Indication: HYPERTENSION
     Dosage: 5 MG, DAILY
     Route: 048
     Dates: start: 20100413
  14. CITALOPRAM HYDROBROMIDE [Concomitant]
     Dosage: 60 MG, DAILY
     Route: 048
     Dates: start: 20100413
  15. CYCLOBENZAPRINE [Concomitant]
     Dosage: 10 MG, UNK
     Route: 048
  16. PRAZOSIN [Concomitant]
     Dosage: 1 MG, UNK
     Route: 048
  17. VESICARE [Concomitant]
     Dosage: 5 MG, UNK
     Route: 048

REACTIONS (5)
  - Intracranial venous sinus thrombosis [None]
  - Headache [None]
  - Vision blurred [None]
  - Nausea [None]
  - Vomiting [None]
